FAERS Safety Report 8650612 (Version 3)
Quarter: 2014Q3

REPORT INFORMATION
  Report Type: Spontaneous
  Country: US (occurrence: US)
  Receive Date: 20120622
  Receipt Date: 20140801
  Transmission Date: 20150326
  Serious: Yes (Hospitalization, Disabling, Other)
  Sender: FDA-Public Use
  Company Number: US-009507513-2011SP051912

PATIENT
  Sex: Female
  Weight: 70.31 kg

DRUGS (5)
  1. FOLIC ACID. [Concomitant]
     Active Substance: FOLIC ACID
     Indication: NUTRITIONAL SUPPLEMENTATION
     Dosage: UNK UNK, QD
  2. NUVARING [Suspect]
     Active Substance: ETHINYL ESTRADIOL\ETONOGESTREL
     Indication: CONTRACEPTION
     Route: 067
     Dates: start: 20101104, end: 20101204
  3. CYTOMEL [Concomitant]
     Active Substance: LIOTHYRONINE SODIUM
     Indication: HYPOTHYROIDISM
     Dosage: 100 ?G, QD
     Dates: start: 2006
  4. CALCIUM (UNSPECIFIED) [Concomitant]
     Active Substance: CALCIUM
     Indication: NUTRITIONAL SUPPLEMENTATION
     Dosage: UNK UNK, QD
  5. VITAMINS (UNSPECIFIED) [Concomitant]
     Active Substance: VITAMINS
     Indication: NUTRITIONAL SUPPLEMENTATION
     Dosage: UNK UNK, QD

REACTIONS (16)
  - Coma [Recovered/Resolved]
  - Cerebrovascular accident [Unknown]
  - Convulsion [Unknown]
  - Insomnia [Unknown]
  - Cognitive disorder [Not Recovered/Not Resolved]
  - Depression [Not Recovered/Not Resolved]
  - Cardiac murmur [Unknown]
  - Sleep apnoea syndrome [Not Recovered/Not Resolved]
  - Cerebral venous thrombosis [Recovered/Resolved with Sequelae]
  - Cerebral infarction [Unknown]
  - Anticoagulation drug level below therapeutic [Unknown]
  - Somnolence [Not Recovered/Not Resolved]
  - Vertigo [Not Recovered/Not Resolved]
  - Muscle tightness [Unknown]
  - Paranoia [Unknown]
  - Drug abuse [Unknown]

NARRATIVE: CASE EVENT DATE: 201011
